FAERS Safety Report 6369588-8 (Version None)
Quarter: 2009Q3

REPORT INFORMATION
  Report Type: 
  Country: None (occurrence: None)
  Receive Date: 20090923
  Receipt Date: 20090914
  Transmission Date: 20100115
  Serious: Yes (Hospitalization, Other)
  Sender: FDA-Public Use
  Company Number: PHHY2009AU35122

PATIENT
  Sex: Male

DRUGS (2)
  1. CLOZARIL [Suspect]
     Indication: SCHIZOPHRENIA, PARANOID TYPE
     Dosage: 400 MG, DAILY
     Dates: start: 20000725, end: 20090824
  2. PAROXETINE HCL [Concomitant]
     Dosage: 20MG DAILY
     Dates: start: 20040101

REACTIONS (5)
  - CONVULSION [None]
  - LOSS OF CONSCIOUSNESS [None]
  - MENTAL DISORDER [None]
  - PARANOIA [None]
  - THERAPY CESSATION [None]
